FAERS Safety Report 11062784 (Version 1)
Quarter: 2015Q2

REPORT INFORMATION
  Report Type: Spontaneous
  Country: US (occurrence: US)
  Receive Date: 20150424
  Receipt Date: 20150424
  Transmission Date: 20150821
  Serious: No
  Sender: FDA-Public Use
  Company Number: US-ALKERMES INC.-ALK-2014-003036

PATIENT

DRUGS (1)
  1. VIVITROL [Suspect]
     Active Substance: NALTREXONE
     Indication: PRODUCT USED FOR UNKNOWN INDICATION
     Dosage: 380 MG, UNK
     Route: 030

REACTIONS (6)
  - Substance use [Unknown]
  - Pain [Unknown]
  - Injection site bruising [Unknown]
  - Myalgia [Unknown]
  - Withdrawal syndrome [Unknown]
  - Injection site reaction [Unknown]

NARRATIVE: CASE EVENT DATE: 2008
